FAERS Safety Report 8495731-0 (Version None)
Quarter: 2012Q3

REPORT INFORMATION
  Report Type: 
  Country: None (occurrence: None)
  Receive Date: 20120709
  Receipt Date: 20120705
  Transmission Date: 20120928
  Serious: Yes (Hospitalization)
  Sender: FDA-Public Use
  Company Number: US-ROCHE-1084535

PATIENT
  Sex: Female

DRUGS (4)
  1. TELAPREVIR [Suspect]
     Indication: HEPATITIS C
     Dates: start: 20120419, end: 20120625
  2. RIBAVIRIN [Suspect]
     Indication: HEPATITIS C
     Dosage: 800 MG DIVIDED DOSES
     Route: 048
     Dates: start: 20120419
  3. RIBAVIRIN [Suspect]
     Dates: start: 20120501
  4. PEGASYS [Suspect]
     Indication: HEPATITIS C
     Route: 058
     Dates: start: 20120419

REACTIONS (2)
  - ANAEMIA [None]
  - BLOOD SODIUM DECREASED [None]
